FAERS Safety Report 8958564 (Version 1)
Quarter: 2012Q4

REPORT INFORMATION
  Report Type: Spontaneous
  Country: US (occurrence: None)
  Receive Date: 20121207
  Receipt Date: 20121207
  Transmission Date: 20130627
  Serious: No
  Sender: FDA-Public Use
  Company Number: None

PATIENT
  Sex: Female
  Weight: 61.24 kg

DRUGS (1)
  1. LEVOTHYROXINE [Suspect]
     Dosage: 100 mcg Once Daily PO
     Route: 048
     Dates: start: 20121031

REACTIONS (3)
  - Feeling abnormal [None]
  - Hair disorder [None]
  - Abdominal discomfort [None]
